FAERS Safety Report 8595857-7 (Version None)
Quarter: 2012Q3

REPORT INFORMATION
  Report Type: 
  Country: None (occurrence: None)
  Receive Date: 20120815
  Receipt Date: 19881018
  Transmission Date: 20120928
  Serious: Yes (Hospitalization)
  Sender: FDA-Public Use
  Company Number: US-ROCHE-1098730

PATIENT
  Sex: Male

DRUGS (6)
  1. ASPIRIN [Concomitant]
  2. PHENERGAN HCL [Concomitant]
     Indication: NAUSEA
  3. DEMEROL [Concomitant]
     Indication: CHEST PAIN
  4. LIDOCAINE [Concomitant]
  5. HEPARIN [Concomitant]
  6. ACTIVASE [Suspect]
     Indication: ACUTE MYOCARDIAL INFARCTION

REACTIONS (3)
  - VENTRICULAR EXTRASYSTOLES [None]
  - CHEST PAIN [None]
  - ELECTROCARDIOGRAM CHANGE [None]
